FAERS Safety Report 7054398-9 (Version None)
Quarter: 2010Q4

REPORT INFORMATION
  Report Type: 
  Country: None (occurrence: None)
  Receive Date: 20101015
  Receipt Date: 20101006
  Transmission Date: 20110411
  Serious: Yes (Other)
  Sender: FDA-Public Use
  Company Number: MSTR-NO-1001S-0004

PATIENT
  Age: 69 Year
  Sex: Male
  Weight: 62 kg

DRUGS (2)
  1. METASTRON [Suspect]
     Indication: METASTATIC PAIN
     Dosage: 124 MBQ, SINGLE DOSE, I.V.
     Route: 042
     Dates: start: 20090331, end: 20090331
  2. MORPHINE [Concomitant]

REACTIONS (6)
  - ANAEMIA [None]
  - BONE MARROW FAILURE [None]
  - BREAST CANCER METASTATIC [None]
  - MALIGNANT NEOPLASM PROGRESSION [None]
  - NAUSEA [None]
  - PLATELET COUNT DECREASED [None]
